FAERS Safety Report 8218725-9 (Version None)
Quarter: 2012Q1

REPORT INFORMATION
  Report Type: 
  Country: None (occurrence: None)
  Receive Date: 20120319
  Receipt Date: 20120312
  Transmission Date: 20120608
  Serious: Yes (Other)
  Sender: FDA-Public Use
  Company Number: PHHY2012ES022071

PATIENT

DRUGS (2)
  1. EXJADE [Suspect]
     Dosage: UNK
  2. AZATIOPRIN [Concomitant]
     Dosage: UNK

REACTIONS (1)
  - APLASIA [None]
